FAERS Safety Report 18104709 (Version 2)
Quarter: 2020Q3

REPORT INFORMATION
  Report Type: Spontaneous
  Country: US (occurrence: US)
  Receive Date: 20200804
  Receipt Date: 20200821
  Transmission Date: 20201103
  Serious: No
  Sender: FDA-Public Use
  Company Number: US-SA-2020SA199815

PATIENT

DRUGS (27)
  1. PEPCID [Concomitant]
     Active Substance: FAMOTIDINE
     Dosage: 20 MG
  2. ZYRTEC [Concomitant]
     Active Substance: CETIRIZINE HYDROCHLORIDE
     Dosage: 10 MG
  3. VITAMIN D3 [Concomitant]
     Active Substance: CHOLECALCIFEROL
     Dosage: 5000 U
  4. HEPARIN [Concomitant]
     Active Substance: HEPARIN SODIUM
     Dosage: 10 IU/ML
  5. EPINEPHRINE. [Concomitant]
     Active Substance: EPINEPHRINE
  6. LYRICA [Concomitant]
     Active Substance: PREGABALIN
     Dosage: 200 MG
  7. OXYBUTYNIN CHLORIDE. [Concomitant]
     Active Substance: OXYBUTYNIN CHLORIDE
     Dosage: 150 MG/ML
  8. LORATADINE. [Concomitant]
     Active Substance: LORATADINE
     Dosage: 10 MG
  9. SAVELLA [Concomitant]
     Active Substance: MILNACIPRAN HYDROCHLORIDE
     Dosage: 100 MG
  10. DIPHENHYDRAMINE. [Concomitant]
     Active Substance: DIPHENHYDRAMINE
  11. LAMICTAL [Concomitant]
     Active Substance: LAMOTRIGINE
     Dosage: 200 MG
  12. KETOROLAC TROMETAMINE [Concomitant]
     Active Substance: KETOROLAC TROMETHAMINE
  13. FISH OIL [Concomitant]
     Active Substance: FISH OIL
     Dosage: 100?150 MG
  14. PROTONIX [OMEPRAZOLE] [Concomitant]
     Active Substance: OMEPRAZOLE
     Dosage: 40 MG
  15. ACETAMINOPHEN. [Concomitant]
     Active Substance: ACETAMINOPHEN
  16. LINZESS [Concomitant]
     Active Substance: LINACLOTIDE
     Dosage: 290 UG
  17. REGLAN [Concomitant]
     Active Substance: METOCLOPRAMIDE HYDROCHLORIDE
     Dosage: 10 MG
  18. MIRALAX [Concomitant]
     Active Substance: POLYETHYLENE GLYCOL 3350
     Dosage: 17 G
  19. CYANOCOBALAMIN. [Concomitant]
     Active Substance: CYANOCOBALAMIN
  20. DUPIXENT [Suspect]
     Active Substance: DUPILUMAB
     Indication: ILLNESS
     Dosage: 300 MG, QOW
     Route: 058
     Dates: start: 2020
  21. GAMUNEX [Concomitant]
     Active Substance: HUMAN IMMUNOGLOBULIN G
  22. PHENAZOPYRIDIN HCL [Concomitant]
     Dosage: 100 MG
  23. MAGNESIUM OXIDE. [Concomitant]
     Active Substance: MAGNESIUM OXIDE
     Dosage: 400 MG
  24. SODIUM CHLORIDE. [Concomitant]
     Active Substance: SODIUM CHLORIDE
  25. LIDOCAINE. [Concomitant]
     Active Substance: LIDOCAINE
     Dosage: 4 %
  26. ROPINIROLE HCL [Concomitant]
     Active Substance: ROPINIROLE HYDROCHLORIDE
     Dosage: 0.5 MG
  27. FERROUS SULFATE. [Concomitant]
     Active Substance: FERROUS SULFATE
     Dosage: 325 MG

REACTIONS (2)
  - Cough [Unknown]
  - Sleep apnoea syndrome [Unknown]

NARRATIVE: CASE EVENT DATE: 2020
